FAERS Safety Report 11112017 (Version 2)
Quarter: 2015Q2

REPORT INFORMATION
  Report Type: Spontaneous
  Country: JP (occurrence: JP)
  Receive Date: 20150514
  Receipt Date: 20150522
  Transmission Date: 20150821
  Serious: Yes (Hospitalization)
  Sender: FDA-Public Use
  Company Number: JP-ROCHE-1576605

PATIENT
  Age: 61 Year
  Sex: Female
  Weight: 41 kg

DRUGS (5)
  1. CISPLATIN. [Concomitant]
     Active Substance: CISPLATIN
     Indication: LUNG ADENOCARCINOMA RECURRENT
     Route: 041
     Dates: start: 20130409, end: 20130701
  2. AVASTIN [Suspect]
     Active Substance: BEVACIZUMAB
     Indication: LUNG ADENOCARCINOMA RECURRENT
     Route: 041
     Dates: start: 20130409, end: 20140121
  3. CORTRIL [Concomitant]
     Active Substance: HYDROCORTISONE
     Indication: SPHENOID SINUS OPERATION
     Route: 048
     Dates: start: 20110811
  4. ALIMTA [Concomitant]
     Active Substance: PEMETREXED DISODIUM
     Indication: LUNG ADENOCARCINOMA RECURRENT
     Route: 041
     Dates: start: 20130409, end: 20140121
  5. THYRADIN [Concomitant]
     Active Substance: LEVOTHYROXINE
     Indication: SPHENOID SINUS OPERATION
     Route: 048
     Dates: start: 20110815

REACTIONS (2)
  - Pneumocephalus [Recovered/Resolved]
  - Cerebrospinal fluid leakage [Recovered/Resolved]

NARRATIVE: CASE EVENT DATE: 20140127
